FAERS Safety Report 5929732-0 (Version None)
Quarter: 2008Q3

REPORT INFORMATION
  Report Type: 
  Country: None (occurrence: None)
  Receive Date: 20080930
  Receipt Date: 20080522
  Transmission Date: 20090109
  Serious: Yes (Other)
  Sender: FDA-Public Use
  Company Number: PHEH2008US04850

PATIENT
  Age: 84 Year
  Sex: Female

DRUGS (11)
  1. EXELON [Suspect]
     Indication: DEMENTIA ALZHEIMER'S TYPE
     Dosage: 10 MG, BID, ORAL
     Route: 048
     Dates: start: 20020101
  2. NAMENDA [Suspect]
     Indication: DEMENTIA ALZHEIMER'S TYPE
     Dosage: 10 MG, BID, ORAL; 10 MG, QD, ORAL; 5 MG, QD, ORAL; 5 MG, QD, ORAL; 5 MG, BID, ORAL; 15 MG, QD, ORAL
     Route: 048
     Dates: start: 20020101, end: 20020101
  3. NAMENDA [Suspect]
     Indication: DEMENTIA ALZHEIMER'S TYPE
     Dosage: 10 MG, BID, ORAL; 10 MG, QD, ORAL; 5 MG, QD, ORAL; 5 MG, QD, ORAL; 5 MG, BID, ORAL; 15 MG, QD, ORAL
     Route: 048
     Dates: start: 20020101, end: 20020101
  4. NAMENDA [Suspect]
     Indication: DEMENTIA ALZHEIMER'S TYPE
     Dosage: 10 MG, BID, ORAL; 10 MG, QD, ORAL; 5 MG, QD, ORAL; 5 MG, QD, ORAL; 5 MG, BID, ORAL; 15 MG, QD, ORAL
     Route: 048
     Dates: start: 20020101
  5. NAMENDA [Suspect]
     Indication: DEMENTIA ALZHEIMER'S TYPE
     Dosage: 10 MG, BID, ORAL; 10 MG, QD, ORAL; 5 MG, QD, ORAL; 5 MG, QD, ORAL; 5 MG, BID, ORAL; 15 MG, QD, ORAL
     Route: 048
     Dates: start: 20020101
  6. ARICEPT [Suspect]
     Indication: DEMENTIA ALZHEIMER'S TYPE
  7. GALANTAMINE HYDROBROMIDE [Suspect]
     Indication: DEMENTIA ALZHEIMER'S TYPE
  8. MACRODANTIN [Concomitant]
  9. TOPROL-XL [Concomitant]
  10. DILTIAZEM [Concomitant]
  11. MIACALCIN [Concomitant]

REACTIONS (8)
  - CONFUSIONAL STATE [None]
  - CONSTIPATION [None]
  - DEPRESSED LEVEL OF CONSCIOUSNESS [None]
  - DROOLING [None]
  - HALLUCINATION [None]
  - PSYCHOTIC DISORDER [None]
  - SOMNOLENCE [None]
  - URINARY INCONTINENCE [None]
